FAERS Safety Report 7092446-0 (Version None)
Quarter: 2010Q4

REPORT INFORMATION
  Report Type: 
  Country: None (occurrence: None)
  Receive Date: 20101108
  Receipt Date: 20101108
  Transmission Date: 20110411
  Serious: Yes (Other)
  Sender: FDA-Public Use
  Company Number: None

PATIENT
  Sex: Female
  Weight: 90.7194 kg

DRUGS (1)
  1. TRAMODOL [Suspect]
     Dosage: 50MG Q6H PO
     Route: 048
     Dates: start: 20100601

REACTIONS (2)
  - NAUSEA [None]
  - VOMITING [None]
